FAERS Safety Report 5038821-7 (Version None)
Quarter: 2006Q2

REPORT INFORMATION
  Report Type: 
  Country: None (occurrence: None)
  Receive Date: 20060629
  Receipt Date: 20060623
  Transmission Date: 20061013
  Serious: Yes (Death, Life-Threatening, Hospitalization, Other)
  Sender: FDA-Public Use
  Company Number: MX-ABBOTT-06P-107-0336929-00

PATIENT
  Sex: Female
  Weight: 37.3 kg

DRUGS (14)
  1. KALETRA [Suspect]
     Indication: HIV INFECTION
     Dosage: 400/100 MG
     Route: 048
     Dates: start: 20050922
  2. RANITIDINE [Concomitant]
     Indication: DRUG USE FOR UNKNOWN INDICATION
     Route: 042
  3. METOCLOPRAMIDE [Concomitant]
     Indication: DRUG USE FOR UNKNOWN INDICATION
     Route: 042
  4. CEFATOXIME [Concomitant]
     Indication: DRUG USE FOR UNKNOWN INDICATION
  5. METRONIDAZOLE [Concomitant]
     Indication: DRUG USE FOR UNKNOWN INDICATION
     Route: 042
  6. KETOROLAC TROMETHAMINE [Concomitant]
     Indication: DRUG USE FOR UNKNOWN INDICATION
  7. PHYTOMENADIONE [Concomitant]
     Indication: DRUG USE FOR UNKNOWN INDICATION
     Route: 042
  8. METAMIZOLE [Concomitant]
     Indication: DRUG USE FOR UNKNOWN INDICATION
     Route: 042
  9. GATIFLOXACIN [Concomitant]
     Indication: DRUG USE FOR UNKNOWN INDICATION
  10. FOLIC ACID [Concomitant]
     Indication: PROPHYLAXIS
     Route: 048
  11. INDINIVIR SULFATE [Concomitant]
     Indication: DRUG USE FOR UNKNOWN INDICATION
  12. ZIDOVUDINE [Concomitant]
     Indication: DRUG USE FOR UNKNOWN INDICATION
  13. LAMIVUDINE [Concomitant]
     Indication: DRUG USE FOR UNKNOWN INDICATION
  14. DIDANOSINE [Concomitant]
     Indication: DRUG USE FOR UNKNOWN INDICATION

REACTIONS (5)
  - ASCITES [None]
  - CHOLECYSTECTOMY [None]
  - HEPATIC FAILURE [None]
  - HEPATITIS C [None]
  - RENAL FAILURE CHRONIC [None]
